APPROVED DRUG PRODUCT: INVOKAMET XR
Active Ingredient: CANAGLIFLOZIN; METFORMIN HYDROCHLORIDE
Strength: 150MG;1GM
Dosage Form/Route: TABLET, EXTENDED RELEASE;ORAL
Application: N205879 | Product #004
Applicant: JANSSEN PHARMACEUTICALS INC
Approved: Sep 20, 2016 | RLD: Yes | RS: Yes | Type: RX

PATENTS:
Patent 7943582 | Expires: Feb 26, 2029
Patent 7943582 | Expires: Feb 26, 2029
Patent 8513202 | Expires: Dec 3, 2027
Patent 8513202 | Expires: Dec 3, 2027
Patent 7943582 | Expires: Feb 26, 2029
Patent 8513202 | Expires: Dec 3, 2027
Patent 7943788 | Expires: Jul 14, 2027
Patent 7943788*PED | Expires: Jan 14, 2028
Patent 8513202*PED | Expires: Jun 3, 2028
Patent 7943582*PED | Expires: Aug 26, 2029

EXCLUSIVITY:
Code: NPP | Date: Dec 18, 2027
Code: PED | Date: Jun 18, 2028